FAERS Safety Report 8348808-4 (Version None)
Quarter: 2012Q2

REPORT INFORMATION
  Report Type: 
  Country: None (occurrence: None)
  Receive Date: 20120508
  Receipt Date: 20120427
  Transmission Date: 20120825
  Serious: Yes (Other)
  Sender: FDA-Public Use
  Company Number: DKLU1079074

PATIENT
  Age: 55 Year
  Sex: Male

DRUGS (7)
  1. SABRIL [Suspect]
     Indication: EPILEPSY
     Dosage: 2 IN 1 D
     Dates: start: 20120307
  2. TOPAMAX [Suspect]
     Indication: PRODUCT USED FOR UNKNOWN INDICATION
  3. VALIUM [Concomitant]
  4. ATIVAN [Concomitant]
  5. VIMPAT [Concomitant]
  6. SIRISIUM (ALL OTHER THERAPEUTIC PRODUCTS) [Concomitant]
  7. LAMICTAL [Concomitant]

REACTIONS (1)
  - NEPHROLITHIASIS [None]
